FAERS Safety Report 4905996-7 (Version None)
Quarter: 2006Q1

REPORT INFORMATION
  Report Type: 
  Country: None (occurrence: None)
  Receive Date: 20060206
  Receipt Date: 20060123
  Transmission Date: 20060701
  Serious: Yes (Other)
  Sender: FDA-Public Use
  Company Number: 2006011839

PATIENT
  Age: 56 Year
  Sex: Male
  Weight: 74.8435 kg

DRUGS (8)
  1. XALATAN [Suspect]
     Indication: GLAUCOMA
     Dosage: 3 MCG (1.5 MCG), OPHTHALMIC
     Route: 047
     Dates: start: 19960101, end: 20050101
  2. TRUSOPT [Concomitant]
  3. TIMOPTIC [Concomitant]
  4. COSOPT [Concomitant]
  5. ALPHAGAN [Concomitant]
  6. PROPINE [Concomitant]
  7. ALL OTHER THERAPEUTIC PRODUCTS (ALL OTHER THERAPEUTIC PRODUCTS) [Concomitant]
  8. ISOPTO - CARBACHOL (CARBACHOL) [Concomitant]

REACTIONS (3)
  - CATARACT [None]
  - DRUG INEFFECTIVE [None]
  - INTRAOCULAR PRESSURE INCREASED [None]
